FAERS Safety Report 25627641 (Version 1)
Quarter: 2025Q3

REPORT INFORMATION
  Report Type: Spontaneous
  Country: SG (occurrence: SG)
  Receive Date: 20250731
  Receipt Date: 20250731
  Transmission Date: 20251020
  Serious: Yes (Life-Threatening)
  Sender: MACLEODS
  Company Number: SG-MLMSERVICE-20250715-PI577528-00057-1

PATIENT

DRUGS (4)
  1. ATORVASTATIN [Suspect]
     Active Substance: ATORVASTATIN
     Indication: Coronary artery disease
     Dosage: REDUCED TO 10 MG Q.P.M.
     Route: 065
  2. ATORVASTATIN [Suspect]
     Active Substance: ATORVASTATIN
     Dosage: REDUCED TO 10 MG Q.P.M.
     Route: 065
  3. TICAGRELOR [Suspect]
     Active Substance: TICAGRELOR
     Indication: Antiplatelet therapy
     Route: 065
  4. EZETIMIBE [Concomitant]
     Active Substance: EZETIMIBE
     Indication: Coronary artery disease
     Route: 065

REACTIONS (5)
  - Myopathy [Unknown]
  - Drug level increased [Unknown]
  - Drug-genetic interaction [Unknown]
  - Drug interaction [Unknown]
  - Blood alkaline phosphatase increased [Unknown]
